FAERS Safety Report 10143235 (Version 1)
Quarter: 2014Q2

REPORT INFORMATION
  Report Type: Spontaneous
  Country: US (occurrence: None)
  Receive Date: 20140429
  Receipt Date: 20140429
  Transmission Date: 20141212
  Serious: Yes (Hospitalization)
  Sender: FDA-Public Use
  Company Number: None

PATIENT
  Age: 71 Year
  Sex: Female

DRUGS (12)
  1. FORTEO [Suspect]
     Indication: SENILE OSTEOPOROSIS
     Route: 058
     Dates: start: 20130622, end: 201403
  2. AMBIEN [Concomitant]
  3. CYMBALTA [Concomitant]
  4. OXYCODONE [Concomitant]
  5. OXYCONTIN [Concomitant]
  6. ALLOPURINOL [Concomitant]
  7. SOMA [Concomitant]
  8. LORATIDINE [Concomitant]
  9. IMITREX [Concomitant]
  10. LASIX [Concomitant]
  11. HUMALOG [Concomitant]
  12. NYSTATIN POWDER [Concomitant]

REACTIONS (2)
  - Fall [None]
  - Drug dose omission [None]
